FAERS Safety Report 5025383-3 (Version None)
Quarter: 2006Q2

REPORT INFORMATION
  Report Type: 
  Country: None (occurrence: None)
  Receive Date: 20060608
  Receipt Date: 20060522
  Transmission Date: 20061013
  Serious: Yes (Other)
  Sender: FDA-Public Use
  Company Number: 2006052104

PATIENT
  Age: 45 Year
  Sex: Female

DRUGS (8)
  1. BEXTRA [Suspect]
     Indication: ILL-DEFINED DISORDER
     Dosage: 20 MG (20 MG, 1 IN 1 D)
     Dates: start: 20020503
  2. XENICAL [Suspect]
     Indication: ILL-DEFINED DISORDER
     Dosage: 360 MG (120 MG, 3 IN 1 D)
     Dates: start: 20020426
  3. VIACTIV (CALCIUM) [Suspect]
     Indication: ILL-DEFINED DISORDER
     Dates: start: 20020101
  4. ELMIRON [Concomitant]
  5. IMIPRAMINE [Concomitant]
  6. DETROL [Concomitant]
  7. BUSPAR [Concomitant]
  8. RANITIDINE [Concomitant]

REACTIONS (5)
  - DRUG HYPERSENSITIVITY [None]
  - LEUKOCYTOCLASTIC VASCULITIS [None]
  - NEURODERMATITIS [None]
  - PHOTOSENSITIVITY REACTION [None]
  - STEVENS-JOHNSON SYNDROME [None]
